FAERS Safety Report 8160133 (Version 9)
Quarter: 2014Q1

REPORT INFORMATION
  Report Type: Report from Study
  Country: US (occurrence: US)
  Receive Date: 20110928
  Receipt Date: 20140103
  Transmission Date: 20141002
  Serious: Yes (Hospitalization)
  Sender: FDA-Public Use
  Company Number: US-GLAXOSMITHKLINE-A0945345A

PATIENT
  Sex: Female

DRUGS (6)
  1. ADVAIR [Suspect]
     Indication: CHRONIC OBSTRUCTIVE PULMONARY DISEASE
     Route: 065
     Dates: start: 2007
  2. SPIRIVA [Suspect]
     Indication: CHRONIC OBSTRUCTIVE PULMONARY DISEASE
     Dates: start: 2007
  3. NEBULIZER [Suspect]
     Route: 055
  4. COMBIVENT [Concomitant]
  5. CLARITIN [Concomitant]
     Indication: MULTIPLE ALLERGIES
  6. ALAVERT [Concomitant]
     Indication: MULTIPLE ALLERGIES

REACTIONS (11)
  - Cataract [Recovered/Resolved]
  - Atelectasis [Recovered/Resolved]
  - Clavicle fracture [Recovering/Resolving]
  - Osteoporosis [Recovered/Resolved]
  - Dyspnoea [Recovered/Resolved]
  - Drug ineffective [Recovered/Resolved]
  - Wheezing [Unknown]
  - Laceration [Unknown]
  - Contusion [Unknown]
  - Fall [Recovering/Resolving]
  - Bone operation [Recovering/Resolving]
